FAERS Safety Report 4317837-X (Version None)
Quarter: 2004Q1

REPORT INFORMATION
  Report Type: 
  Country: None (occurrence: None)
  Receive Date: 20040316
  Receipt Date: 20040309
  Transmission Date: 20041129
  Serious: Yes (Hospitalization)
  Sender: FDA-Public Use
  Company Number: 200413007GDDC

PATIENT
  Sex: Female

DRUGS (7)
  1. NATRILIX - SLOW RELEASE [Suspect]
     Route: 048
     Dates: end: 20030726
  2. ZOLOFT [Suspect]
     Dates: end: 20030728
  3. XALATAN [Concomitant]
  4. SOMAC [Concomitant]
  5. ACTONEL [Concomitant]
  6. NAPROSYN [Concomitant]
  7. AVAPRO [Concomitant]

REACTIONS (4)
  - BLOOD CORTICOTROPHIN ABNORMAL [None]
  - CIRCULATORY COLLAPSE [None]
  - HYPONATRAEMIA [None]
  - LOSS OF CONSCIOUSNESS [None]
